FAERS Safety Report 7374303-5 (Version None)
Quarter: 2011Q1

REPORT INFORMATION
  Report Type: 
  Country: None (occurrence: None)
  Receive Date: 20110325
  Receipt Date: 20110228
  Transmission Date: 20110831
  Serious: No
  Sender: FDA-Public Use
  Company Number: US-B.I. PHARMACEUTICALS,INC./RIDGEFIELD-2011-BP-05655BP

PATIENT
  Sex: Male

DRUGS (7)
  1. PRADAXA [Suspect]
     Indication: ATRIAL FIBRILLATION
     Dosage: 300 MG
     Route: 048
     Dates: start: 20101215
  2. FLECAINIDE ACETATE [Concomitant]
     Indication: ATRIAL FIBRILLATION
     Dosage: 200 MG
     Route: 048
  3. ZOLPIDEM [Concomitant]
     Indication: INSOMNIA
     Route: 048
  4. TURMERIC [Concomitant]
     Indication: PROPHYLAXIS
     Route: 048
  5. UROCIT [Concomitant]
     Indication: NEPHROLITHIASIS
     Dosage: 60 MG
     Route: 048
  6. ATIVAN [Concomitant]
     Indication: ANXIETY
     Route: 048
  7. FISH OIL [Suspect]
     Indication: PROPHYLAXIS
     Dosage: 2000 MG
     Route: 048

REACTIONS (3)
  - PERIPHERAL COLDNESS [None]
  - FEELING COLD [None]
  - URINARY TRACT INFECTION [None]
